FAERS Safety Report 11112098 (Version 1)
Quarter: 2015Q2

REPORT INFORMATION
  Report Type: Spontaneous
  Country: IT (occurrence: IT)
  Receive Date: 20150514
  Receipt Date: 20150514
  Transmission Date: 20150821
  Serious: Yes (Hospitalization)
  Sender: FDA-Public Use
  Company Number: IT-AUROBINDO-AUR-APL-2015-04045

PATIENT
  Age: 37 Year
  Sex: Male

DRUGS (3)
  1. ENALAPRIL [Suspect]
     Active Substance: ENALAPRIL
     Indication: CARDIAC FAILURE
     Dosage: 2.5 MG, TWO TIMES A DAY
     Route: 065
  2. CARVEDILOL  6.25 MG [Suspect]
     Active Substance: CARVEDILOL
     Indication: CARDIAC FAILURE
     Dosage: U6.25 MG, TWO TIMES A DAY
     Route: 065
  3. SPIRONOLACTONE. [Suspect]
     Active Substance: SPIRONOLACTONE
     Indication: CARDIAC FAILURE
     Dosage: 50 MG, DAILY
     Route: 065

REACTIONS (16)
  - Cardiac failure [Unknown]
  - Ventricular tachycardia [Unknown]
  - Pericardial effusion [Unknown]
  - Heart rate abnormal [Unknown]
  - Visceral congestion [Unknown]
  - Ventricular fibrillation [Unknown]
  - Pleural effusion [Unknown]
  - Eccentric fixation [Unknown]
  - Liver tenderness [Unknown]
  - Blood pressure abnormal [Unknown]
  - Hypotension [Unknown]
  - Oedema [Unknown]
  - Jugular vein distension [Unknown]
  - Dysphagia [Unknown]
  - Dyspnoea [Unknown]
  - Condition aggravated [Unknown]
